FAERS Safety Report 20771758 (Version 1)
Quarter: 2022Q2

REPORT INFORMATION
  Report Type: Spontaneous
  Country: CZ (occurrence: CZ)
  Receive Date: 20220430
  Receipt Date: 20220430
  Transmission Date: 20220720
  Serious: Yes (Hospitalization, Other)
  Sender: FDA-Public Use
  Company Number: CZ-BAUSCH-BL-2022-009241

PATIENT
  Age: 40 Year
  Sex: Male

DRUGS (6)
  1. CLARITHROMYCIN [Suspect]
     Active Substance: CLARITHROMYCIN
     Indication: COVID-19
     Dosage: UNK
     Route: 065
     Dates: start: 2021, end: 2021
  2. CEFOTAXIME [Suspect]
     Active Substance: CEFOTAXIME SODIUM
     Indication: COVID-19
     Dosage: UNK
     Route: 065
     Dates: start: 2021, end: 2021
  3. DEXAMETHASONE [Suspect]
     Active Substance: DEXAMETHASONE
     Indication: COVID-19
     Dosage: UNK
     Route: 042
     Dates: start: 2021
  4. OXYGEN [Concomitant]
     Active Substance: OXYGEN
     Indication: Cyanosis
     Dosage: 6 L/MIN
     Route: 065
     Dates: start: 2021, end: 2021
  5. OXYGEN [Concomitant]
     Active Substance: OXYGEN
     Dosage: 12 L/MIN
     Route: 065
     Dates: start: 2021, end: 2021
  6. OXYGEN [Concomitant]
     Active Substance: OXYGEN
     Dosage: 5 L/MIN
     Route: 065
     Dates: start: 2021, end: 2021

REACTIONS (2)
  - Condition aggravated [Recovering/Resolving]
  - COVID-19 [Recovering/Resolving]

NARRATIVE: CASE EVENT DATE: 20210101
